FAERS Safety Report 8041086-5 (Version None)
Quarter: 2012Q1

REPORT INFORMATION
  Report Type: 
  Country: None (occurrence: None)
  Receive Date: 20120109
  Receipt Date: 20111222
  Transmission Date: 20120608
  Serious: Yes (Hospitalization)
  Sender: FDA-Public Use
  Company Number: 2011-000120

PATIENT
  Age: 74 Year
  Sex: Female

DRUGS (3)
  1. JUVELA N (TOCOPHERYL NICOTINATE) 03/26/2008 TO 06/26/2009 [Concomitant]
  2. ACTONEL [Suspect]
     Indication: OSTEOPOROSIS
     Dosage: 2.5 MG DAILY, ORAL
     Route: 048
     Dates: start: 20070530
  3. METHYCOBAL (MECOBALAMIN) UNK TO 06/26/2009 [Concomitant]

REACTIONS (1)
  - CARPAL TUNNEL SYNDROME [None]
